FAERS Safety Report 6096797-8 (Version None)
Quarter: 2009Q1

REPORT INFORMATION
  Report Type: 
  Country: None (occurrence: None)
  Receive Date: 20090227
  Receipt Date: 20090222
  Transmission Date: 20090719
  Serious: Yes (Hospitalization)
  Sender: FDA-Public Use
  Company Number: CA-BIOGENIDEC-2008BI017857

PATIENT
  Age: 45 Year
  Sex: Male

DRUGS (2)
  1. TYSABRI [Suspect]
     Indication: MULTIPLE SCLEROSIS
     Route: 042
     Dates: start: 20071213, end: 20080724
  2. TYSABRI [Suspect]
     Route: 042
     Dates: start: 20081101

REACTIONS (5)
  - CELLULITIS STREPTOCOCCAL [None]
  - CLOSTRIDIAL INFECTION [None]
  - MULTIPLE SCLEROSIS RELAPSE [None]
  - NECROTISING FASCIITIS [None]
  - SEPTIC SHOCK [None]
